FAERS Safety Report 4354641-0 (Version None)
Quarter: 2004Q2

REPORT INFORMATION
  Report Type: 
  Country: None (occurrence: None)
  Receive Date: 20040506
  Receipt Date: 20040506
  Transmission Date: 20050107
  Serious: Yes (Other)
  Sender: FDA-Public Use
  Company Number: None

PATIENT
  Sex: Female

DRUGS (2)
  1. TRAMADOL HCL [Suspect]
     Indication: CERVICAL SPINAL STENOSIS
     Dosage: 50 MG ONE-TWO Q 4-6H PO PRN
     Route: 048
     Dates: start: 20020604, end: 20021205
  2. TRAMADOL HCL [Suspect]
     Indication: LUMBAR SPINAL STENOSIS
     Dosage: 50 MG ONE-TWO Q 4-6H PO PRN
     Route: 048
     Dates: start: 20020604, end: 20021205

REACTIONS (3)
  - ABDOMINAL PAIN UPPER [None]
  - DRUG EFFECT DECREASED [None]
  - PHARMACEUTICAL PRODUCT COMPLAINT [None]
